FAERS Safety Report 8789762 (Version 1)
Quarter: 2012Q4

REPORT INFORMATION
  Report Type: Spontaneous
  Country: US (occurrence: None)
  Receive Date: 20120911
  Receipt Date: 20120911
  Transmission Date: 20130627
  Serious: No
  Sender: FDA-Public Use
  Company Number: None

PATIENT
  Age: 81 Year
  Sex: Female

DRUGS (1)
  1. NEXAVAR [Suspect]
     Indication: CANCER
     Route: 048
     Dates: start: 20120828, end: 20120901

REACTIONS (1)
  - Gastrointestinal disorder [None]
